FAERS Safety Report 5281844-3 (Version None)
Quarter: 2007Q1

REPORT INFORMATION
  Report Type: 
  Country: None (occurrence: None)
  Receive Date: 20070330
  Receipt Date: 20070323
  Transmission Date: 20070707
  Serious: Yes (Life-Threatening, Hospitalization, Other)
  Sender: FDA-Public Use
  Company Number: HQWYE152104DEC06

PATIENT
  Sex: Male
  Weight: 63 kg

DRUGS (9)
  1. MYLOTARG [Suspect]
     Indication: ACUTE MYELOID LEUKAEMIA RECURRENT
     Route: 041
     Dates: start: 20060828, end: 20060828
  2. MYLOTARG [Suspect]
     Route: 041
     Dates: start: 20060911, end: 20060911
  3. KEITEN [Concomitant]
     Route: 041
     Dates: start: 20060830, end: 20060903
  4. FUNGUARD [Concomitant]
     Route: 041
     Dates: start: 20060916, end: 20060921
  5. MEROPEN [Concomitant]
     Route: 041
     Dates: start: 20060903, end: 20060920
  6. ZOVIRAX [Concomitant]
     Route: 041
     Dates: start: 20060913, end: 20060921
  7. FUNGIZONE [Concomitant]
     Route: 041
     Dates: start: 20060907, end: 20060924
  8. VANCOMYCIN [Concomitant]
     Route: 041
     Dates: start: 20060815, end: 20060828
  9. TARGOCID [Concomitant]
     Route: 041
     Dates: start: 20060903, end: 20060907

REACTIONS (6)
  - ANAEMIA [None]
  - CONDITION AGGRAVATED [None]
  - NEUTROPENIA [None]
  - PERIANAL ABSCESS [None]
  - PLATELET COUNT DECREASED [None]
  - WHITE BLOOD CELL COUNT DECREASED [None]
